FAERS Safety Report 8675093 (Version 5)
Quarter: 2012Q4

REPORT INFORMATION
  Report Type: Report from Study
  Country: US (occurrence: US)
  Receive Date: 20120720
  Receipt Date: 20121109
  Transmission Date: 20130627
  Serious: Yes (Life-Threatening)
  Sender: FDA-Public Use
  Company Number: US-JNJFOC-20120707606

PATIENT
  Age: 41 Year
  Sex: Male
  Weight: 78.47 kg

DRUGS (5)
  1. USTEKINUMAB [Suspect]
     Indication: PSORIASIS
     Route: 058
     Dates: start: 20100721, end: 20110629
  2. ENBREL [Concomitant]
     Indication: PSORIASIS
     Dates: start: 200809
  3. ENBREL [Concomitant]
     Indication: PSORIASIS
     Dates: start: 200812, end: 20100711
  4. ENBREL [Concomitant]
     Indication: PSORIASIS
     Dates: start: 20110727, end: 20120628
  5. ENBREL [Concomitant]
     Indication: PSORIASIS
     Dates: start: 200705

REACTIONS (1)
  - Rectal adenocarcinoma [Recovered/Resolved with Sequelae]
